FAERS Safety Report 21173270 (Version 2)
Quarter: 2022Q3

REPORT INFORMATION
  Report Type: Spontaneous
  Country: CO (occurrence: CO)
  Receive Date: 20220804
  Receipt Date: 20220808
  Transmission Date: 20221027
  Serious: No
  Sender: FDA-Public Use
  Company Number: CO-PFIZER INC-PV202200035633

PATIENT
  Age: 50 Year
  Sex: Female

DRUGS (1)
  1. PALBOCICLIB [Suspect]
     Active Substance: PALBOCICLIB
     Dosage: 100 MG, UNSPECIFIED FRECUENCY
     Route: 048

REACTIONS (6)
  - Neoplasm progression [Unknown]
  - Decreased immune responsiveness [Unknown]
  - Alopecia [Unknown]
  - Memory impairment [Unknown]
  - Nausea [Unknown]
  - Gait disturbance [Unknown]
